FAERS Safety Report 5547493-4 (Version None)
Quarter: 2007Q4

REPORT INFORMATION
  Report Type: 
  Country: None (occurrence: None)
  Receive Date: 20071128
  Receipt Date: 20070510
  Transmission Date: 20080405
  Serious: Yes (Other)
  Sender: FDA-Public Use
  Company Number: 2007039521

PATIENT
  Sex: 0

DRUGS (3)
  1. LIPITOR [Suspect]
     Dosage: 10 MG
  2. NIACIN [Suspect]
  3. FOSAMAX PLUS D [Suspect]

REACTIONS (5)
  - ABDOMINAL PAIN UPPER [None]
  - DRUG INEFFECTIVE [None]
  - DRUG INTERACTION [None]
  - HYPERTENSION [None]
  - UNEVALUABLE EVENT [None]
